FAERS Safety Report 8503496-9 (Version None)
Quarter: 2012Q3

REPORT INFORMATION
  Report Type: 
  Country: None (occurrence: None)
  Receive Date: 20120702
  Receipt Date: 20120618
  Transmission Date: 20120928
  Serious: Yes (Death, Hospitalization, Other)
  Sender: FDA-Public Use
  Company Number: 2012MA007567

PATIENT
  Age: 20 Year
  Sex: Female

DRUGS (11)
  1. VINCRISTINE [Concomitant]
  2. CYTARABINE [Concomitant]
  3. DEXAMETHASONE [Concomitant]
  4. DOXORUBICIN HCL [Concomitant]
  5. ASPARAGINASE [Concomitant]
  6. VINORELBINE [Suspect]
     Indication: B PRECURSOR TYPE ACUTE LEUKAEMIA
     Dosage: 20 MG/M**2;QD;
  7. GEMCITABINE HYDROCHLORIDE [Suspect]
     Indication: B PRECURSOR TYPE ACUTE LEUKAEMIA
     Dosage: 10 MG/M**2;
  8. THIOTEPA [Concomitant]
  9. MITOXANTRONE [Concomitant]
  10. TOPOTECAN [Concomitant]
  11. CISPLATIN [Concomitant]

REACTIONS (10)
  - DISORIENTATION [None]
  - RESPIRATORY ALKALOSIS [None]
  - DEPRESSED LEVEL OF CONSCIOUSNESS [None]
  - SOMNOLENCE [None]
  - MENTAL STATUS CHANGES [None]
  - CONVULSION [None]
  - HEPATIC FUNCTION ABNORMAL [None]
  - NEUTROPENIA [None]
  - HYPERAMMONAEMIA [None]
  - REFUSAL OF TREATMENT BY PATIENT [None]
